FAERS Safety Report 8364245-0 (Version None)
Quarter: 2012Q2

REPORT INFORMATION
  Report Type: 
  Country: None (occurrence: None)
  Receive Date: 20120516
  Receipt Date: 20120510
  Transmission Date: 20120825
  Serious: Yes (Death)
  Sender: FDA-Public Use
  Company Number: PHHY2012IT040854

PATIENT
  Age: 52 Year
  Sex: Female

DRUGS (3)
  1. DEFERASIROX [Suspect]
     Indication: CHELATION THERAPY
  2. DEFEROXAMINE MESYLATE [Suspect]
     Indication: CHELATION THERAPY
  3. DEFERIPRONE [Suspect]
     Indication: CHELATION THERAPY

REACTIONS (1)
  - HEPATIC NEOPLASM MALIGNANT [None]
